FAERS Safety Report 8426193-7 (Version None)
Quarter: 2012Q2

REPORT INFORMATION
  Report Type: 
  Country: None (occurrence: None)
  Receive Date: 20120611
  Receipt Date: 20120531
  Transmission Date: 20120825
  Serious: Yes (Hospitalization)
  Sender: FDA-Public Use
  Company Number: CH-SANOFI-AVENTIS-2012SA034746

PATIENT
  Age: 55 Year
  Sex: Female
  Weight: 45 kg

DRUGS (9)
  1. CITALOPRAM [Concomitant]
     Route: 048
  2. LANTUS [Interacting]
     Dosage: FREQ.: AS NECESSARY DOSE:20 UNIT(S)
     Route: 058
     Dates: start: 20120328, end: 20120421
  3. NOVORAPID [Suspect]
     Dosage: FREQ.: AS NECESSARY
     Route: 058
     Dates: end: 20120328
  4. HUMALOG [Interacting]
     Dosage: FREQ.: AS NECESSARY DOSE:25 UNIT(S)
     Route: 058
     Dates: start: 20120328
  5. HUMALOG [Interacting]
     Dosage: DOSE:6 UNIT(S)
     Route: 058
     Dates: start: 20120421, end: 20120421
  6. PRAVASTATIN SODIUM [Concomitant]
     Route: 048
  7. INSULIN DETEMIR [Suspect]
     Dosage: FREQ.: AS NECESSARY
     Route: 058
     Dates: end: 20120328
  8. PREDNISOLONE [Interacting]
     Route: 065
     Dates: start: 20120420, end: 20120421
  9. DIOVAN [Concomitant]
     Route: 048

REACTIONS (6)
  - INJECTION SITE PAIN [None]
  - KETOSIS [None]
  - INJECTION SITE REACTION [None]
  - INJECTION SITE NECROSIS [None]
  - FLUSHING [None]
  - BLOOD GLUCOSE DECREASED [None]
